FAERS Safety Report 8103685-1 (Version None)
Quarter: 2012Q1

REPORT INFORMATION
  Report Type: 
  Country: None (occurrence: None)
  Receive Date: 20120201
  Receipt Date: 20120111
  Transmission Date: 20120608
  Serious: Yes (Hospitalization, Other)
  Sender: FDA-Public Use
  Company Number: US-ROCHE-GNE320671

PATIENT
  Sex: Male
  Weight: 2.679 kg

DRUGS (4)
  1. OMALIZUMAB [Suspect]
     Dates: start: 20110917
  2. OMALIZUMAB [Suspect]
     Indication: ASTHMA
     Dosage: 150 MG, Q4W
     Route: 064
     Dates: start: 20100320
  3. OMALIZUMAB [Suspect]
     Dosage: 150 MG, Q4W
     Route: 063
  4. HEPATITIS B IMMUNE GLOBULIN (HUMAN) [Concomitant]

REACTIONS (3)
  - UNEVALUABLE EVENT [None]
  - PREMATURE BABY [None]
  - PYREXIA [None]
